FAERS Safety Report 4733224-4 (Version None)
Quarter: 2005Q3

REPORT INFORMATION
  Report Type: 
  Country: None (occurrence: None)
  Receive Date: 20050721
  Receipt Date: 20050518
  Transmission Date: 20060218
  Serious: No
  Sender: FDA-Public Use
  Company Number: 2005SP000872

PATIENT
  Age: 45 Year
  Sex: Female

DRUGS (7)
  1. LUNESTA [Suspect]
     Dosage: 3 MG;HS;ORAL
     Route: 048
     Dates: start: 20050501, end: 20050501
  2. ZOLOFT [Concomitant]
  3. WELLBUTRIN [Concomitant]
  4. NEXIUM [Concomitant]
  5. LEVOXYL [Concomitant]
  6. CENTRUM [Concomitant]
  7. CALCIUM GLUCONATE [Concomitant]

REACTIONS (2)
  - DYSPEPSIA [None]
  - GASTROOESOPHAGEAL REFLUX DISEASE [None]
